FAERS Safety Report 10590641 (Version 6)
Quarter: 2019Q2

REPORT INFORMATION
  Report Type: Spontaneous
  Country: US (occurrence: US)
  Receive Date: 20141118
  Receipt Date: 20190502
  Transmission Date: 20190711
  Serious: Yes (Other)
  Sender: FDA-Public Use
  Company Number: US-PFIZER INC-2014311188

PATIENT
  Age: 3 Year
  Sex: Male
  Weight: 14.06 kg

DRUGS (4)
  1. ELELYSO [Suspect]
     Active Substance: TALIGLUCERASE ALFA
     Indication: GAUCHER^S DISEASE TYPE I
     Dosage: 600 UNITS (42 U/KG), EVERY 14 DAYS
     Route: 042
     Dates: start: 20141029
  2. ELELYSO [Suspect]
     Active Substance: TALIGLUCERASE ALFA
     Dosage: 1200 ML, EVERY 2 WEEKS
  3. ELELYSO [Suspect]
     Active Substance: TALIGLUCERASE ALFA
     Dosage: UNK
     Route: 042
  4. ELELYSO [Suspect]
     Active Substance: TALIGLUCERASE ALFA
     Dosage: 60 IU/KG, UNK (60 IU/KG 2WEEKS)
     Dates: start: 201410

REACTIONS (11)
  - Acne [Recovered/Resolved]
  - Product use issue [Unknown]
  - Chills [Recovered/Resolved]
  - Excessive eye blinking [Recovered/Resolved]
  - Therapeutic product effect incomplete [Unknown]
  - Bone pain [Unknown]
  - Vomiting projectile [Recovered/Resolved]
  - Flushing [Recovered/Resolved]
  - Arthralgia [Unknown]
  - Growth retardation [Unknown]
  - Crying [Recovered/Resolved]

NARRATIVE: CASE EVENT DATE: 2014
